FAERS Safety Report 9760342 (Version 1)
Quarter: 2013Q4

REPORT INFORMATION
  Report Type: Spontaneous
  Country: US (occurrence: US)
  Receive Date: 20131216
  Receipt Date: 20131216
  Transmission Date: 20140711
  Serious: No
  Sender: FDA-Public Use
  Company Number: US-GILEAD-2010-0028900

PATIENT
  Age: 35 Year
  Sex: Female

DRUGS (8)
  1. LETAIRIS [Suspect]
     Indication: PULMONARY ARTERIAL HYPERTENSION
     Route: 048
     Dates: start: 20100329
  2. COREG [Concomitant]
  3. LASIX [Concomitant]
  4. REVATIO [Concomitant]
  5. POT CL [Concomitant]
  6. LISINOPRIL [Concomitant]
  7. LEVOTHYROXIN [Concomitant]
  8. SPIRONOLACTONE [Concomitant]

REACTIONS (1)
  - Oedema peripheral [Unknown]
